FAERS Safety Report 19772831 (Version 2)
Quarter: 2021Q3

REPORT INFORMATION
  Report Type: Spontaneous
  Country: FR (occurrence: FR)
  Receive Date: 20210831
  Receipt Date: 20210914
  Transmission Date: 20211014
  Serious: Yes (Other)
  Sender: FDA-Public Use
  Company Number: FR-PFIZER INC-202101078196

PATIENT
  Age: 42 Year
  Sex: Female
  Weight: 72 kg

DRUGS (3)
  1. TCAPS [Concomitant]
     Indication: HYPOTHYROIDISM
     Dosage: UNK
  2. COMIRNATY [Suspect]
     Active Substance: TOZINAMERAN
     Indication: COVID-19 IMMUNISATION
     Dosage: DOSE 2, SINGLE
     Route: 030
     Dates: start: 20210622, end: 20210622
  3. LEVOTHYROX [Concomitant]
     Active Substance: LEVOTHYROXINE
     Indication: HYPOTHYROIDISM
     Dosage: UNK

REACTIONS (8)
  - Malaise [Recovering/Resolving]
  - Haematoma [Recovering/Resolving]
  - Headache [Recovering/Resolving]
  - Menstruation delayed [Recovering/Resolving]
  - Heavy menstrual bleeding [Recovering/Resolving]
  - Dyspnoea [Recovering/Resolving]
  - Asthenia [Recovering/Resolving]
  - Menstrual disorder [Recovering/Resolving]

NARRATIVE: CASE EVENT DATE: 20210730
